FAERS Safety Report 8094673-2 (Version None)
Quarter: 2012Q1

REPORT INFORMATION
  Report Type: 
  Country: None (occurrence: None)
  Receive Date: 20120129
  Receipt Date: 20111220
  Transmission Date: 20120608
  Serious: No
  Sender: FDA-Public Use
  Company Number: US-ABBOTT-11P-163-0885073-00

PATIENT
  Sex: Male
  Weight: 77.18 kg

DRUGS (5)
  1. FOLIC ACID [Concomitant]
     Indication: PRODUCT USED FOR UNKNOWN INDICATION
  2. METHOTREXATE [Concomitant]
     Indication: PRODUCT USED FOR UNKNOWN INDICATION
     Dates: start: 20111101
  3. HUMIRA [Suspect]
     Indication: ANKYLOSING SPONDYLITIS
     Route: 058
     Dates: start: 20090101, end: 20100101
  4. METHOTREXATE [Concomitant]
     Dates: end: 20110201
  5. HUMIRA [Suspect]
     Route: 058
     Dates: start: 20100101, end: 20110201

REACTIONS (3)
  - PYREXIA [None]
  - COCCIDIOIDOMYCOSIS [None]
  - DYSPNOEA [None]
